FAERS Safety Report 17674800 (Version 2)
Quarter: 2020Q2

REPORT INFORMATION
  Report Type: Spontaneous
  Country: US (occurrence: US)
  Receive Date: 20200416
  Receipt Date: 20200518
  Transmission Date: 20200714
  Serious: No
  Sender: FDA-Public Use
  Company Number: US-BAYER-2020-061853

PATIENT
  Age: 40 Year
  Sex: Female

DRUGS (3)
  1. BETASERON [Suspect]
     Active Substance: INTERFERON BETA-1B
     Dosage: 4 MIU, QOD
     Route: 058
     Dates: start: 20200331, end: 20200430
  2. BETACONNECT [Suspect]
     Active Substance: DEVICE
  3. BETASERON [Suspect]
     Active Substance: INTERFERON BETA-1B
     Dosage: UNK
     Dates: end: 20200502

REACTIONS (2)
  - Incorrect dose administered by device [Not Recovered/Not Resolved]
  - Device alarm issue [Not Recovered/Not Resolved]

NARRATIVE: CASE EVENT DATE: 202004
